FAERS Safety Report 4311403-8 (Version None)
Quarter: 2004Q1

REPORT INFORMATION
  Report Type: 
  Country: None (occurrence: None)
  Receive Date: 20040303
  Receipt Date: 20040303
  Transmission Date: 20041129
  Serious: Yes (Hospitalization)
  Sender: FDA-Public Use
  Company Number: None

PATIENT
  Sex: Female

DRUGS (5)
  1. NEULASTA [Suspect]
     Dosage: Q 2 WKS 6 MG
     Dates: start: 20040112
  2. NEULASTA [Suspect]
     Dosage: Q 2 WKS 6 MG
     Dates: start: 20040128
  3. NEULASTA [Suspect]
     Dosage: Q 2 WKS 6 MG
     Dates: start: 20040209
  4. NEULASTA [Suspect]
     Dosage: Q 2 WKS 6 MG
     Dates: start: 20040223
  5. ADR/CTX [Concomitant]

REACTIONS (4)
  - ASTHENIA [None]
  - DIZZINESS [None]
  - HEADACHE [None]
  - WHITE BLOOD CELL COUNT INCREASED [None]
